FAERS Safety Report 12225211 (Version 1)
Quarter: 2016Q1

REPORT INFORMATION
  Report Type: Spontaneous
  Country: US (occurrence: US)
  Receive Date: 20160331
  Receipt Date: 20160331
  Transmission Date: 20160526
  Serious: No
  Sender: FDA-Public Use
  Company Number: US-APOTEX-2016AP006821

PATIENT
  Sex: Female

DRUGS (5)
  1. CARBAMAZEPINE. [Suspect]
     Active Substance: CARBAMAZEPINE
     Indication: TRIGEMINAL NEURALGIA
     Dosage: 0.5 DF DAILY
     Route: 065
     Dates: start: 2013
  2. TRILEPTAL [Suspect]
     Active Substance: OXCARBAZEPINE
     Indication: TRIGEMINAL NEURALGIA
     Dosage: 0.5 DF DAILY
     Route: 065
     Dates: start: 2013
  3. TEGRETOL [Suspect]
     Active Substance: CARBAMAZEPINE
     Indication: TRIGEMINAL NEURALGIA
     Dosage: 0.5 DF DAILY
     Route: 065
     Dates: start: 2013
  4. OXCARBAZEPINE. [Suspect]
     Active Substance: OXCARBAZEPINE
     Indication: TRIGEMINAL NEURALGIA
     Dosage: 0.5 DF DAILY
     Route: 065
     Dates: start: 2013
  5. HORIZANT [Concomitant]
     Active Substance: GABAPENTIN ENACARBIL
     Indication: SMALL FIBRE NEUROPATHY
     Dosage: 600 MG, Q.AM
     Route: 050
     Dates: start: 201207

REACTIONS (4)
  - Drug ineffective [Unknown]
  - Head discomfort [Unknown]
  - Lethargy [Unknown]
  - Depression [Unknown]
